FAERS Safety Report 8395475-X (Version None)
Quarter: 2012Q2

REPORT INFORMATION
  Report Type: 
  Country: None (occurrence: None)
  Receive Date: 20120530
  Receipt Date: 20120521
  Transmission Date: 20120825
  Serious: Yes (Other)
  Sender: FDA-Public Use
  Company Number: US-ASTRAZENECA-2012SE32778

PATIENT
  Age: 78 Year
  Sex: Female

DRUGS (2)
  1. NEXIUM [Suspect]
  2. UNSPECIFIED [Concomitant]

REACTIONS (2)
  - HAEMORRHAGE [None]
  - INTENTIONAL DRUG MISUSE [None]
